FAERS Safety Report 13391060 (Version 2)
Quarter: 2017Q2

REPORT INFORMATION
  Report Type: Spontaneous
  Country: JP (occurrence: JP)
  Receive Date: 20170331
  Receipt Date: 20170629
  Transmission Date: 20170830
  Serious: Yes (Hospitalization, Other)
  Sender: FDA-Public Use
  Company Number: JP-GLAXOSMITHKLINE-JP2017JPN043438

PATIENT
  Age: 66 Year
  Sex: Female

DRUGS (4)
  1. ZOVIRAX [Suspect]
     Active Substance: ACYCLOVIR
     Indication: HERPES ZOSTER MENINGITIS
     Dosage: 5 MG/KG, 1D
     Route: 041
  2. ZOVIRAX [Suspect]
     Active Substance: ACYCLOVIR
     Dosage: 500 MG, UNK
     Route: 041
  3. VALTREX [Suspect]
     Active Substance: VALACYCLOVIR HYDROCHLORIDE
     Indication: HERPES ZOSTER
     Dosage: UNK
     Route: 048
  4. ZOVIRAX [Suspect]
     Active Substance: ACYCLOVIR
     Dosage: 10 MG/KG, 1D
     Route: 041

REACTIONS (6)
  - Seizure [Unknown]
  - Altered state of consciousness [Recovering/Resolving]
  - Respiratory failure [Unknown]
  - Toxic encephalopathy [Recovering/Resolving]
  - Pyrexia [Unknown]
  - Coma [Recovering/Resolving]
